FAERS Safety Report 4279472-1 (Version None)
Quarter: 2004Q1

REPORT INFORMATION
  Report Type: 
  Country: None (occurrence: None)
  Receive Date: 20040127
  Receipt Date: 20040114
  Transmission Date: 20041129
  Serious: Yes (Other)
  Sender: FDA-Public Use
  Company Number: FR-GLAXOSMITHKLINE-B0309868B

PATIENT
  Sex: Male
  Weight: 3.4 kg

DRUGS (2)
  1. DEROXAT [Suspect]
     Dates: start: 20030301, end: 20030629
  2. EFFEXOR [Concomitant]
     Dosage: 25MG PER DAY
     Dates: end: 20030301

REACTIONS (5)
  - ASPIRATION [None]
  - DRUG EXPOSURE DURING PREGNANCY [None]
  - DRUG EXPOSURE VIA BREAST MILK [None]
  - FOETAL DISTRESS SYNDROME [None]
  - NEONATAL ASPIRATION [None]
